FAERS Safety Report 5847854-X (Version None)
Quarter: 2008Q3

REPORT INFORMATION
  Report Type: 
  Country: None (occurrence: None)
  Receive Date: 20080818
  Receipt Date: 20080804
  Transmission Date: 20090109
  Serious: Yes (Hospitalization)
  Sender: FDA-Public Use
  Company Number: US-BAYER-99/01323-USE

PATIENT
  Age: 55 Year
  Sex: Female
  Weight: 57 kg

DRUGS (7)
  1. BETASERON [Suspect]
     Indication: PRIMARY PROGRESSIVE MULTIPLE SCLEROSIS
     Dosage: TOTAL DAILY DOSE: 8 MIU
     Route: 058
     Dates: start: 20070718
  2. BETASERON [Suspect]
     Route: 058
     Dates: start: 20021014, end: 20050610
  3. BETASERON [Suspect]
     Route: 058
     Dates: start: 20060105, end: 20061113
  4. BETASERON [Suspect]
     Dosage: TOTAL DAILY DOSE: 8 MIU
     Route: 058
     Dates: start: 19930101, end: 20020414
  5. BACLOFEN PRN [Concomitant]
  6. OXYBUTYNIN CHLORIDE [Concomitant]
  7. PREMPRO [Concomitant]

REACTIONS (4)
  - ABSCESS LIMB [None]
  - INJECTION SITE ABSCESS STERILE [None]
  - INJECTION SITE MASS [None]
  - INJECTION SITE PAIN [None]
